FAERS Safety Report 11914331 (Version 1)
Quarter: 2016Q1

REPORT INFORMATION
  Report Type: Spontaneous
  Country: US (occurrence: US)
  Receive Date: 20160113
  Receipt Date: 20160113
  Transmission Date: 20160526
  Serious: Yes (Other)
  Sender: FDA-Public Use
  Company Number: US-BAYER-2016-006329

PATIENT
  Age: 75 Year
  Sex: Female
  Weight: 66.67 kg

DRUGS (2)
  1. CLARITIN [Suspect]
     Active Substance: LORATADINE
     Indication: HYPERSENSITIVITY
  2. CLARITIN [Suspect]
     Active Substance: LORATADINE
     Indication: URTICARIA
     Dosage: 1 DF, PRN
     Route: 048

REACTIONS (3)
  - Cataract [Unknown]
  - Product use issue [Unknown]
  - Dizziness [Recovered/Resolved]
